FAERS Safety Report 6276916-0 (Version None)
Quarter: 2009Q3

REPORT INFORMATION
  Report Type: 
  Country: None (occurrence: None)
  Receive Date: 20090722
  Receipt Date: 20081015
  Transmission Date: 20100115
  Serious: No
  Sender: FDA-Public Use
  Company Number: US-BRISTOL-MYERS SQUIBB COMPANY-14372718

PATIENT
  Age: 77 Year
  Sex: Male

DRUGS (5)
  1. COUMADIN [Suspect]
     Dosage: 1 DOSAGE FORM = COUMADIN 5MG/10MG.
     Dates: start: 20070404
  2. FUROSEMIDE [Concomitant]
  3. LIPITOR [Concomitant]
  4. CARVEDILOL [Concomitant]
  5. LISINOPRIL [Concomitant]

REACTIONS (1)
  - INTERNATIONAL NORMALISED RATIO INCREASED [None]
